FAERS Safety Report 23381086 (Version 1)
Quarter: 2024Q1

REPORT INFORMATION
  Report Type: Report from Study
  Country: CA (occurrence: CA)
  Receive Date: 20240109
  Receipt Date: 20240109
  Transmission Date: 20240409
  Serious: Yes (Other)
  Sender: FDA-Public Use
  Company Number: CA-GTI-000071

PATIENT
  Sex: Female

DRUGS (3)
  1. IMMUNE GLOBULIN NOS [Suspect]
     Active Substance: IMMUNE GLOBULIN NOS
     Indication: Chronic villitis of unknown etiology
     Route: 065
  2. ASPIRIN [Suspect]
     Active Substance: ASPIRIN
     Indication: Chronic villitis of unknown etiology
     Route: 065
  3. PREDNISONE [Suspect]
     Active Substance: PREDNISONE
     Indication: Chronic villitis of unknown etiology
     Route: 065

REACTIONS (5)
  - Foetal death [Unknown]
  - Exposure during pregnancy [Unknown]
  - Placental calcification [Unknown]
  - Abortion spontaneous [Unknown]
  - Stillbirth [Unknown]
